FAERS Safety Report 8145450-5 (Version None)
Quarter: 2012Q1

REPORT INFORMATION
  Report Type: 
  Country: None (occurrence: None)
  Receive Date: 20120214
  Receipt Date: 20120130
  Transmission Date: 20120608
  Serious: Yes (Hospitalization)
  Sender: FDA-Public Use
  Company Number: 2012-0535

PATIENT
  Age: 74 Year
  Sex: Female

DRUGS (5)
  1. TRIAMTERENE /HCTZ (DYAZIDE) [Concomitant]
  2. TRAZODONE HCL [Concomitant]
  3. CLONAZEPAM [Concomitant]
  4. LOVASTATIN [Concomitant]
  5. SOMATULINE DEPOT [Suspect]
     Indication: ACROMEGALY
     Dosage: 90 MG (90 MG, 1 IN 28 D), SUBCUTANEOUS
     Route: 058
     Dates: start: 20111114

REACTIONS (1)
  - BREAST CANCER FEMALE [None]
